FAERS Safety Report 15131487 (Version 23)
Quarter: 2022Q2

REPORT INFORMATION
  Report Type: Spontaneous
  Country: GB (occurrence: GB)
  Receive Date: 20180711
  Receipt Date: 20220502
  Transmission Date: 20220721
  Serious: Yes (Hospitalization, Other)
  Sender: FDA-Public Use
  Company Number: GB-JNJFOC-20180336475

PATIENT
  Age: 35 Year
  Sex: Female

DRUGS (34)
  1. OMEPRAZOLE [Suspect]
     Active Substance: OMEPRAZOLE
     Indication: Schizophrenia
     Dosage: 3 MILLIGRAM
     Route: 065
  2. OMEPRAZOLE [Suspect]
     Active Substance: OMEPRAZOLE
     Dosage: UNK
     Route: 065
  3. OMEPRAZOLE [Suspect]
     Active Substance: OMEPRAZOLE
     Dosage: 3 MILLIGRAM
     Route: 065
  4. OMEPRAZOLE [Suspect]
     Active Substance: OMEPRAZOLE
     Dosage: 5 MILLIGRAM
     Route: 065
  5. OMEPRAZOLE [Suspect]
     Active Substance: OMEPRAZOLE
     Dosage: 5 MILLIGRAM
     Route: 065
  6. OLANZAPINE [Suspect]
     Active Substance: OLANZAPINE
     Indication: Schizophrenia
     Dosage: 15 MILLIGRAM
     Route: 065
  7. OLANZAPINE [Suspect]
     Active Substance: OLANZAPINE
     Dosage: 10 MILLIGRAM
     Route: 065
  8. OLANZAPINE [Suspect]
     Active Substance: OLANZAPINE
     Dosage: 5 MILLIGRAM
     Route: 065
  9. OLANZAPINE [Suspect]
     Active Substance: OLANZAPINE
     Dosage: UNK
     Route: 065
  10. OLANZAPINE [Suspect]
     Active Substance: OLANZAPINE
     Dosage: UNK
     Route: 065
  11. OLANZAPINE [Suspect]
     Active Substance: OLANZAPINE
     Dosage: 5 MG, UNK
     Route: 065
  12. OLANZAPINE [Suspect]
     Active Substance: OLANZAPINE
     Dosage: 15 MILLIGRAM
     Route: 065
  13. OLANZAPINE [Suspect]
     Active Substance: OLANZAPINE
     Dosage: 10 MILLIGRAM
     Route: 065
  14. ARIPIPRAZOLE [Suspect]
     Active Substance: ARIPIPRAZOLE
     Indication: Schizophrenia
     Dosage: 10 MILLIGRAM
     Route: 065
  15. ARIPIPRAZOLE [Suspect]
     Active Substance: ARIPIPRAZOLE
     Dosage: UNK
     Route: 065
  16. ARIPIPRAZOLE [Suspect]
     Active Substance: ARIPIPRAZOLE
     Dosage: UNK
     Route: 065
  17. ARIPIPRAZOLE [Suspect]
     Active Substance: ARIPIPRAZOLE
     Dosage: UNK
     Route: 065
  18. ARIPIPRAZOLE [Suspect]
     Active Substance: ARIPIPRAZOLE
     Dosage: 5 MILLIGRAM
     Route: 065
  19. ARIPIPRAZOLE [Suspect]
     Active Substance: ARIPIPRAZOLE
     Dosage: 10 MILLIGRAM
     Route: 065
  20. ARIPIPRAZOLE [Suspect]
     Active Substance: ARIPIPRAZOLE
     Dosage: 5 MILLIGRAM
     Route: 065
  21. SERTRALINE [Suspect]
     Active Substance: SERTRALINE HYDROCHLORIDE
     Indication: Schizophrenia
     Dosage: 100 MILLIGRAM
     Route: 065
  22. SERTRALINE [Suspect]
     Active Substance: SERTRALINE HYDROCHLORIDE
     Dosage: 50 MILLIGRAM
     Route: 065
  23. SERTRALINE [Suspect]
     Active Substance: SERTRALINE HYDROCHLORIDE
     Dosage: 150 MILLIGRAM
     Route: 065
  24. SERTRALINE [Suspect]
     Active Substance: SERTRALINE HYDROCHLORIDE
     Dosage: UNK
     Route: 065
  25. SERTRALINE [Suspect]
     Active Substance: SERTRALINE HYDROCHLORIDE
     Dosage: 150 MILLIGRAM
     Route: 065
  26. SERTRALINE [Suspect]
     Active Substance: SERTRALINE HYDROCHLORIDE
     Dosage: 100 MILLIGRAM
     Route: 065
  27. DIAZEPAM [Suspect]
     Active Substance: DIAZEPAM
     Indication: Schizophrenia
     Dosage: 5 MILLIGRAM
     Route: 065
  28. DIAZEPAM [Suspect]
     Active Substance: DIAZEPAM
     Dosage: 15 MILLIGRAM
     Route: 065
  29. DIAZEPAM [Suspect]
     Active Substance: DIAZEPAM
     Dosage: 5 MILLIGRAM, UNK
     Route: 065
  30. DIAZEPAM [Suspect]
     Active Substance: DIAZEPAM
     Dosage: 15 MILLIGRAM, UNK
     Route: 065
  31. RISPERDAL [Suspect]
     Active Substance: RISPERIDONE
     Indication: Schizophrenia
     Dosage: 3 MILLIGRAM
     Route: 048
  32. RISPERDAL [Suspect]
     Active Substance: RISPERIDONE
     Dosage: 3 MILLIGRAM
     Route: 048
  33. RISPERDAL [Suspect]
     Active Substance: RISPERIDONE
     Dosage: 3 MILLIGRAM
     Route: 048
  34. RISPERDAL [Suspect]
     Active Substance: RISPERIDONE
     Dosage: 3 MILLIGRAM
     Route: 048

REACTIONS (8)
  - Sepsis [Unknown]
  - Schizophrenia [Unknown]
  - Dehydration [Unknown]
  - Social avoidant behaviour [Unknown]
  - Disease recurrence [Unknown]
  - Treatment noncompliance [Unknown]
  - Off label use [Unknown]
  - Drug ineffective for unapproved indication [Unknown]
